FAERS Safety Report 21627798 (Version 2)
Quarter: 2024Q3

REPORT INFORMATION
  Report Type: Report from Study
  Country: US (occurrence: US)
  Receive Date: 20221122
  Receipt Date: 20240904
  Transmission Date: 20241017
  Serious: No
  Sender: ABBVIE
  Company Number: US-ABBVIE-22K-163-4444111-00

PATIENT
  Sex: Male

DRUGS (1)
  1. IMBRUVICA [Suspect]
     Active Substance: IBRUTINIB
     Indication: Chronic lymphocytic leukaemia
     Dosage: 140 MG TWO TIMES PER DAY
     Route: 048
     Dates: start: 202003

REACTIONS (10)
  - Fatigue [Unknown]
  - Prostatomegaly [Unknown]
  - Arthralgia [Unknown]
  - Hypoaesthesia [Unknown]
  - Peripheral swelling [Unknown]
  - Joint swelling [Unknown]
  - Joint range of motion decreased [Unknown]
  - Astigmatism [Unknown]
  - Glaucoma [Unknown]
  - Memory impairment [Unknown]
